FAERS Safety Report 22161548 (Version 1)
Quarter: 2023Q1

REPORT INFORMATION
  Report Type: Spontaneous
  Country: US (occurrence: US)
  Receive Date: 20230331
  Receipt Date: 20230331
  Transmission Date: 20230418
  Serious: Yes (Other)
  Sender: FDA-Public Use
  Company Number: US-AMERICAN REGENT INC-2023000792

PATIENT
  Age: 32 Year
  Sex: Male

DRUGS (7)
  1. ADENOSINE [Suspect]
     Active Substance: ADENOSINE
     Indication: Supraventricular tachycardia
     Dosage: 1 DOSAGE FORM, SINGLE
     Route: 065
  2. ADENOSINE [Suspect]
     Active Substance: ADENOSINE
     Dosage: 1 DOSAGE FORM, SINGLE
     Route: 065
  3. METOPROLOL [Suspect]
     Active Substance: METOPROLOL
     Indication: Supraventricular tachycardia
     Dosage: UNK
  4. DILTIAZEM [Suspect]
     Active Substance: DILTIAZEM
     Indication: Supraventricular tachycardia
     Dosage: UNK
     Route: 040
  5. DILTIAZEM [Suspect]
     Active Substance: DILTIAZEM
     Dosage: UNK
  6. METOPROLOL [Suspect]
     Active Substance: METOPROLOL
     Indication: Supraventricular tachycardia
     Dosage: UNK
     Route: 048
  7. FLECAINIDE [Suspect]
     Active Substance: FLECAINIDE
     Indication: Supraventricular tachycardia
     Dosage: 1 DOSAGE FORM, SINGLE
     Route: 065

REACTIONS (4)
  - Drug ineffective [Recovered/Resolved]
  - Supraventricular tachycardia [Recovered/Resolved]
  - Drug ineffective for unapproved indication [Recovered/Resolved]
  - Product use in unapproved indication [Unknown]
